FAERS Safety Report 7810720-4 (Version None)
Quarter: 2011Q4

REPORT INFORMATION
  Report Type: 
  Country: None (occurrence: None)
  Receive Date: 20111006
  Receipt Date: 20110927
  Transmission Date: 20120403
  Serious: Yes (Hospitalization)
  Sender: FDA-Public Use
  Company Number: KV201100199

PATIENT
  Sex: Male
  Weight: 1.2 kg

DRUGS (1)
  1. MAKENA [Suspect]
     Indication: MATERNAL EXPOSURE DURING PREGNANCY
     Dates: end: 20110901

REACTIONS (4)
  - PREMATURE BABY [None]
  - CAESAREAN SECTION [None]
  - FOETAL GROWTH RESTRICTION [None]
  - MATERNAL DRUGS AFFECTING FOETUS [None]
